FAERS Safety Report 24870478 (Version 1)
Quarter: 2025Q1

REPORT INFORMATION
  Report Type: Report from Study
  Country: DE (occurrence: DE)
  Receive Date: 20250121
  Receipt Date: 20250121
  Transmission Date: 20250409
  Serious: Yes (Hospitalization, Other)
  Sender: JOHNSON AND JOHNSON
  Company Number: DE-BAYER-2024A173133

PATIENT
  Age: 71 Year
  Sex: Male

DRUGS (3)
  1. VENTAVIS [Suspect]
     Active Substance: ILOPROST
     Indication: Pulmonary fibrosis
     Dates: start: 20241126, end: 202412
  2. VENTAVIS [Suspect]
     Active Substance: ILOPROST
     Dates: start: 20241210, end: 20241230
  3. VENTAVIS [Suspect]
     Active Substance: ILOPROST
     Dates: start: 20250104

REACTIONS (10)
  - Dyspnoea [Unknown]
  - Oxygen saturation decreased [Unknown]
  - Off label use [Not Recovered/Not Resolved]
  - Hypotension [Not Recovered/Not Resolved]
  - Pruritus [Recovered/Resolved]
  - Rash [Recovered/Resolved]
  - Chest pain [Unknown]
  - Product dose omission issue [Recovered/Resolved]
  - Dysphagia [Unknown]
  - Product dose omission issue [Unknown]

NARRATIVE: CASE EVENT DATE: 20241126
